FAERS Safety Report 9753585 (Version 1)
Quarter: 2013Q4

REPORT INFORMATION
  Report Type: Spontaneous
  Country: JP (occurrence: JP)
  Receive Date: 20131213
  Receipt Date: 20131213
  Transmission Date: 20140711
  Serious: Yes (Other)
  Sender: FDA-Public Use
  Company Number: PHHY2013JP143688

PATIENT
  Age: 57 Year
  Sex: Female

DRUGS (4)
  1. CICLOSPORIN [Suspect]
     Indication: RENAL TRANSPLANT
     Dosage: 200 MG, UNK
  2. MYCOPHENOLATE MOFETIL [Concomitant]
     Indication: RENAL TRANSPLANT
     Dosage: 30 MG, QD (AT 20-30 MG/KG/DAY)
  3. AZATHIOPRINE [Concomitant]
     Indication: RENAL TRANSPLANT
  4. METHYLPREDNISOLONE [Concomitant]
     Indication: RENAL TRANSPLANT
     Dosage: 4 MG, PER DAY

REACTIONS (4)
  - Focal segmental glomerulosclerosis [Unknown]
  - Proteinuria [Unknown]
  - Kidney fibrosis [Unknown]
  - Renal tubular atrophy [Unknown]
